FAERS Safety Report 9517264 (Version 1)
Quarter: 2013Q1

REPORT INFORMATION
  Report Type: Spontaneous
  Country: US (occurrence: None)
  Receive Date: 20130305
  Receipt Date: 20130305
  Transmission Date: 20140127
  Serious: Yes (Other)
  Sender: FDA-Public Use
  Company Number: 163-21880-12031135

PATIENT
  Age: 60 Year
  Sex: Female

DRUGS (3)
  1. REVLIMID (LENALIDOMIDE) (25 MILLIGRAM, CAPSULES) [Suspect]
     Indication: PLASMA CELL MYELOMA
     Dosage: 21 IN 28 D
     Route: 048
     Dates: start: 201111
  2. DOXIL (DOXORUBICIN HYDROCHLORIDE) [Concomitant]
  3. VINCRISTINE (VINCRISTINE) [Concomitant]

REACTIONS (5)
  - Insomnia [None]
  - Fatigue [None]
  - Drug ineffective [None]
  - Anxiety [None]
  - Oxygen saturation decreased [None]
